FAERS Safety Report 21021790 (Version 2)
Quarter: 2022Q3

REPORT INFORMATION
  Report Type: Spontaneous
  Country: CA (occurrence: CA)
  Receive Date: 20220629
  Receipt Date: 20220719
  Transmission Date: 20221027
  Serious: Yes (Hospitalization)
  Sender: FDA-Public Use
  Company Number: CA-009507513-2206CAN008344

PATIENT
  Age: 38 Year
  Sex: Male

DRUGS (2)
  1. EMEND [Suspect]
     Active Substance: APREPITANT
     Indication: Prophylaxis of nausea and vomiting
     Dosage: 125 MILLIGRAM, DAY 1, STRENGTH: 125 MILLIGRAM
     Route: 048
     Dates: start: 20220606, end: 20220606
  2. EMEND [Suspect]
     Active Substance: APREPITANT
     Dosage: 80 MILLIGRAM, DAYS 2 AND 3, STRENGTH: 80 MILLIGRAM
     Route: 048
     Dates: start: 20220607, end: 20220608

REACTIONS (1)
  - Illness [Unknown]

NARRATIVE: CASE EVENT DATE: 20220601
